FAERS Safety Report 5124756-8 (Version None)
Quarter: 2006Q4

REPORT INFORMATION
  Report Type: 
  Country: None (occurrence: None)
  Receive Date: 20061011
  Receipt Date: 20050908
  Transmission Date: 20070319
  Serious: Yes (Other)
  Sender: FDA-Public Use
  Company Number: JP-ROCHE-417258

PATIENT
  Age: 71 Year
  Sex: Male
  Weight: 45 kg

DRUGS (6)
  1. PEGASYS [Suspect]
     Route: 058
     Dates: start: 20050518, end: 20050810
  2. URSO [Concomitant]
     Route: 048
  3. GLYCYRON [Concomitant]
     Route: 048
  4. LOXOPROFEN SODIUM [Concomitant]
     Route: 048
     Dates: start: 20050518, end: 20050817
  5. MUCOSTA [Concomitant]
     Route: 048
     Dates: start: 20050518
  6. ASPARA K [Concomitant]
     Route: 048
     Dates: start: 20050713, end: 20051116

REACTIONS (2)
  - ATRIAL FIBRILLATION [None]
  - CEREBRAL INFARCTION [None]
